FAERS Safety Report 5233546-7 (Version None)
Quarter: 2007Q1

REPORT INFORMATION
  Report Type: 
  Country: None (occurrence: None)
  Receive Date: 20061208
  Receipt Date: 20060417
  Transmission Date: 20070707
  Serious: Yes (Other)
  Sender: FDA-Public Use
  Company Number: 2006UW04398

PATIENT
  Age: 63 Year
  Sex: Female
  Weight: 58.967 kg

DRUGS (7)
  1. CRESTOR [Suspect]
     Indication: BLOOD CHOLESTEROL INCREASED
     Dosage: 10 MG PO
     Route: 048
  2. COREG [Concomitant]
  3. PREVACID [Concomitant]
  4. BONIVA [Concomitant]
  5. LORAZEPAM [Concomitant]
  6. AMBIEN [Concomitant]
  7. VITAMINS [Concomitant]

REACTIONS (10)
  - ANXIETY [None]
  - ASTHENIA [None]
  - BACK PAIN [None]
  - CHEST DISCOMFORT [None]
  - CHOKING [None]
  - MULTIPLE SCLEROSIS [None]
  - MUSCLE SPASMS [None]
  - MUSCULAR WEAKNESS [None]
  - MUSCULOSKELETAL CHEST PAIN [None]
  - PHARYNGOLARYNGEAL PAIN [None]
